FAERS Safety Report 21949976 (Version 1)
Quarter: 2023Q1

REPORT INFORMATION
  Report Type: Spontaneous
  Country: US (occurrence: US)
  Receive Date: 20230203
  Receipt Date: 20230203
  Transmission Date: 20230417
  Serious: No
  Sender: FDA-Public Use
  Company Number: US-BRISTOL-MYERS SQUIBB COMPANY-2023-016473

PATIENT
  Age: 48 Year
  Sex: Male

DRUGS (2)
  1. ENTECAVIR [Interacting]
     Active Substance: ENTECAVIR
     Indication: Product used for unknown indication
  2. VENCLEXTA [Interacting]
     Active Substance: VENETOCLAX
     Indication: Acute myeloid leukaemia
     Dosage: 200 MG, 2/DAYS; DOSE REDUCED

REACTIONS (1)
  - Drug interaction [Unknown]

NARRATIVE: CASE EVENT DATE: 20230202
